FAERS Safety Report 7234512-2 (Version None)
Quarter: 2011Q1

REPORT INFORMATION
  Report Type: 
  Country: None (occurrence: None)
  Receive Date: 20110119
  Receipt Date: 20110114
  Transmission Date: 20110831
  Serious: Yes (Hospitalization)
  Sender: FDA-Public Use
  Company Number: FR-MERCK-1101FRA00071

PATIENT
  Age: 62 Year
  Sex: Female

DRUGS (12)
  1. ROSUVASTATIN CALCIUM [Concomitant]
     Route: 048
  2. METFORMIN [Concomitant]
     Route: 048
  3. NOROXIN [Suspect]
     Route: 048
     Dates: start: 20100901, end: 20100901
  4. FUROSEMIDE [Concomitant]
     Route: 048
  5. VALSARTAN [Concomitant]
     Route: 048
  6. ASPIRIN LYSINE [Concomitant]
     Route: 048
  7. CLOMIPRAMINE HYDROCHLORIDE [Concomitant]
     Route: 048
  8. GLICLAZIDE [Concomitant]
     Route: 048
  9. SPIRONOLACTONE [Concomitant]
     Route: 048
  10. POLYETHYLENE GLYCOL 4000 [Concomitant]
     Route: 048
  11. BISOPROLOL FUMARATE [Concomitant]
     Route: 048
  12. NOROXIN [Suspect]
     Indication: URINARY TRACT INFECTION
     Route: 048
     Dates: start: 20101104, end: 20101106

REACTIONS (1)
  - LEUKOCYTOCLASTIC VASCULITIS [None]
